FAERS Safety Report 9474213 (Version 1)
Quarter: 2013Q3

REPORT INFORMATION
  Report Type: Spontaneous
  Country: US (occurrence: US)
  Receive Date: 20130823
  Receipt Date: 20130823
  Transmission Date: 20140515
  Serious: No
  Sender: FDA-Public Use
  Company Number: US-JNJFOC-20130807197

PATIENT
  Sex: Female
  Weight: 80.74 kg

DRUGS (2)
  1. DURAGESIC [Suspect]
     Indication: LUPUS-LIKE SYNDROME
     Route: 062
     Dates: start: 2012, end: 2013
  2. DURAGESIC [Suspect]
     Indication: LUPUS-LIKE SYNDROME
     Route: 062
     Dates: start: 2013

REACTIONS (3)
  - Drug ineffective [Unknown]
  - Product quality issue [Unknown]
  - Wrong technique in drug usage process [Unknown]
